FAERS Safety Report 10549940 (Version 1)
Quarter: 2014Q4

REPORT INFORMATION
  Report Type: Spontaneous
  Country: FR (occurrence: FR)
  Receive Date: 20141028
  Receipt Date: 20141028
  Transmission Date: 20150529
  Serious: Yes (Hospitalization)
  Sender: FDA-Public Use
  Company Number: FR-PFIZER INC-2014291459

PATIENT
  Age: 6 Year
  Sex: Male

DRUGS (5)
  1. ZECLAR [Suspect]
     Active Substance: CLARITHROMYCIN
     Dosage: UNK
     Route: 048
  2. CLARITYNE [Suspect]
     Active Substance: LORATADINE
     Dosage: UNK
     Route: 048
  3. EFFERALGAN [Suspect]
     Active Substance: ACETAMINOPHEN
     Dosage: UNK
     Route: 048
  4. ADVIL [Suspect]
     Active Substance: IBUPROFEN
     Dosage: UNK
     Route: 048
  5. COLLU-HEXTRIL [Suspect]
     Active Substance: HEXETIDINE
     Dosage: UNK
     Route: 002

REACTIONS (3)
  - Stevens-Johnson syndrome [Recovered/Resolved]
  - Pneumonia chlamydial [None]
  - Urinary retention [Unknown]

NARRATIVE: CASE EVENT DATE: 2000
